FAERS Safety Report 8043838-4 (Version None)
Quarter: 2012Q1

REPORT INFORMATION
  Report Type: 
  Country: None (occurrence: None)
  Receive Date: 20120113
  Receipt Date: 20120105
  Transmission Date: 20120608
  Serious: No
  Sender: FDA-Public Use
  Company Number: US-BIOGENIDEC-2012BI000623

PATIENT
  Age: 60 Year
  Sex: Female

DRUGS (4)
  1. AVONEX [Concomitant]
     Indication: MULTIPLE SCLEROSIS
     Route: 030
     Dates: start: 19970502
  2. TYSABRI [Suspect]
     Indication: MULTIPLE SCLEROSIS
     Route: 042
     Dates: start: 20070321, end: 20081230
  3. AVONEX [Concomitant]
     Route: 030
     Dates: start: 20040816
  4. TYSABRI [Suspect]
     Route: 042
     Dates: start: 20100421

REACTIONS (3)
  - ASTHENIA [None]
  - HYPOTONIA [None]
  - BALANCE DISORDER [None]
